FAERS Safety Report 9837219 (Version 1)
Quarter: 2014Q1

REPORT INFORMATION
  Report Type: Spontaneous
  Country: US (occurrence: US)
  Receive Date: 20140123
  Receipt Date: 20140123
  Transmission Date: 20141002
  Serious: Yes (Other)
  Sender: FDA-Public Use
  Company Number: US-JNJFOC-20140111325

PATIENT
  Age: 43 Year
  Sex: Female
  Weight: 110.22 kg

DRUGS (1)
  1. TOPAMAX [Suspect]
     Indication: WEIGHT DECREASED
     Route: 048
     Dates: start: 20140116

REACTIONS (13)
  - Loss of consciousness [Recovered/Resolved]
  - Altered state of consciousness [Unknown]
  - Chest pain [Unknown]
  - Hypertension [Not Recovered/Not Resolved]
  - Drug dispensing error [Unknown]
  - Incorrect dose administered [Unknown]
  - Musculoskeletal pain [Unknown]
  - Chest discomfort [Unknown]
  - Dyspnoea [Unknown]
  - Abasia [Not Recovered/Not Resolved]
  - Nausea [Unknown]
  - Dizziness [Not Recovered/Not Resolved]
  - Off label use [Unknown]
